FAERS Safety Report 5404830-9 (Version None)
Quarter: 2007Q3

REPORT INFORMATION
  Report Type: 
  Country: None (occurrence: None)
  Receive Date: 20070803
  Receipt Date: 20070730
  Transmission Date: 20080115
  Serious: Yes (Other)
  Sender: FDA-Public Use
  Company Number: PHNU2007DE02717

PATIENT
  Age: 60 Year
  Sex: Female

DRUGS (2)
  1. PRAVIDEL [Suspect]
     Indication: PROLACTINOMA
     Dosage: 10 MG/DAY
     Route: 048
     Dates: start: 19990101
  2. PRAVIDEL [Suspect]
     Dosage: 6.25 MG/DAY
     Route: 048

REACTIONS (2)
  - AORTIC VALVE SCLEROSIS [None]
  - SINUS BRADYCARDIA [None]
